FAERS Safety Report 18356947 (Version 2)
Quarter: 2020Q4

REPORT INFORMATION
  Report Type: Spontaneous
  Country: BR (occurrence: BR)
  Receive Date: 20201007
  Receipt Date: 20201222
  Transmission Date: 20210114
  Serious: Yes (Life-Threatening, Other)
  Sender: FDA-Public Use
  Company Number: BR-JNJFOC-20200952173

PATIENT
  Age: 63 Year
  Sex: Female

DRUGS (3)
  1. CONDRES [Concomitant]
     Indication: OSTEOARTHRITIS
     Dates: start: 201910
  2. DORENE [Concomitant]
     Active Substance: PREGABALIN
     Indication: PAIN
     Dosage: EVERY NIGHT
     Dates: start: 2009
  3. SIMPONI [Suspect]
     Active Substance: GOLIMUMAB
     Indication: PSORIATIC ARTHROPATHY
     Route: 042
     Dates: start: 202006, end: 202008

REACTIONS (1)
  - Lymph node tuberculosis [Not Recovered/Not Resolved]

NARRATIVE: CASE EVENT DATE: 202008
